FAERS Safety Report 5364323-4 (Version None)
Quarter: 2007Q2

REPORT INFORMATION
  Report Type: 
  Country: None (occurrence: None)
  Receive Date: 20070620
  Receipt Date: 19930826
  Transmission Date: 20071010
  Serious: Yes (Life-Threatening, Disabling)
  Sender: FDA-Public Use
  Company Number: BE-MERCK-92010632

PATIENT
  Age: 60 Year
  Sex: Male
  Weight: 70 kg

DRUGS (4)
  1. ZOCOR [Suspect]
     Indication: HYPERCHOLESTEROLAEMIA
     Route: 048
     Dates: start: 19901201, end: 19910701
  2. DIGOXIN [Concomitant]
     Route: 065
     Dates: start: 19880501
  3. PHENPROCOUMON [Concomitant]
     Route: 065
     Dates: start: 19880501
  4. PROPAFENONE HYDROCHLORIDE [Concomitant]
     Route: 065
     Dates: start: 19891201

REACTIONS (1)
  - AMYOTROPHIC LATERAL SCLEROSIS [None]
